FAERS Safety Report 12449142 (Version 2)
Quarter: 2016Q2

REPORT INFORMATION
  Report Type: Spontaneous
  Country: FR (occurrence: FR)
  Receive Date: 20160608
  Receipt Date: 20160615
  Transmission Date: 20160815
  Serious: Yes (Other)
  Sender: FDA-Public Use
  Company Number: FR-009507513-1605FRA013382

PATIENT
  Age: 42 Year
  Sex: Female
  Weight: 76 kg

DRUGS (1)
  1. NEXPLANON [Suspect]
     Active Substance: ETONOGESTREL
     Indication: CONTRACEPTION
     Dosage: UNK
     Route: 059
     Dates: start: 20130222

REACTIONS (9)
  - Breast swelling [Unknown]
  - Complication associated with device [Not Recovered/Not Resolved]
  - Ligament sprain [Not Recovered/Not Resolved]
  - Implant site pain [Unknown]
  - Dependence [Unknown]
  - Incorrect drug administration duration [Unknown]
  - Abdominal distension [Unknown]
  - Amenorrhoea [Unknown]
  - Oedema [Not Recovered/Not Resolved]

NARRATIVE: CASE EVENT DATE: 20130222
